FAERS Safety Report 6662918-9 (Version None)
Quarter: 2010Q1

REPORT INFORMATION
  Report Type: 
  Country: None (occurrence: None)
  Receive Date: 20100323
  Receipt Date: 20100127
  Transmission Date: 20100710
  Serious: Yes (Hospitalization)
  Sender: FDA-Public Use
  Company Number: US-000036

PATIENT
  Age: 58 Year
  Sex: Male
  Weight: 56.6996 kg

DRUGS (9)
  1. ZENPEP [Suspect]
     Indication: PANCREATITIS CHRONIC
     Dosage: ORAL
     Route: 048
     Dates: start: 20100101, end: 20100101
  2. LANTUS [Concomitant]
  3. LAMICTAL [Concomitant]
  4. LEVOTHYROXINE [Concomitant]
  5. TRAZODONE HCL [Concomitant]
  6. HYDROCODONE BITARTRATE [Concomitant]
  7. OMEPRAZOLE [Concomitant]
  8. PSYLLIUM HUSK [Concomitant]
  9. PANCRELIPASE [Concomitant]

REACTIONS (2)
  - ABDOMINAL TENDERNESS [None]
  - PANCREATITIS ACUTE [None]
